FAERS Safety Report 7212169-4 (Version None)
Quarter: 2010Q4

REPORT INFORMATION
  Report Type: 
  Country: None (occurrence: None)
  Receive Date: 20101227
  Receipt Date: 20101214
  Transmission Date: 20110411
  Serious: Yes (Congenital Anomaly, Other)
  Sender: FDA-Public Use
  Company Number: GER/UKI/10/0016931

PATIENT

DRUGS (2)
  1. SERTRALINE (SERTRALINE) [Suspect]
     Indication: DEPRESSION
     Dosage: 100 MG, TRANSPLACENTAL; 50 MG, TRANSPLACENTAL
     Route: 064
     Dates: end: 20101027
  2. SERTRALINE (SERTRALINE) [Suspect]
     Indication: DEPRESSION
     Dosage: 100 MG, TRANSPLACENTAL; 50 MG, TRANSPLACENTAL
     Route: 064
     Dates: start: 20101027

REACTIONS (4)
  - ABORTION INDUCED [None]
  - ANENCEPHALY [None]
  - CONGENITAL ANOMALY [None]
  - MATERNAL DRUGS AFFECTING FOETUS [None]
